FAERS Safety Report 8115390-6 (Version None)
Quarter: 2012Q1

REPORT INFORMATION
  Report Type: 
  Country: None (occurrence: None)
  Receive Date: 20120206
  Receipt Date: 20120206
  Transmission Date: 20120608
  Serious: Yes (Life-Threatening, Hospitalization, Other)
  Sender: FDA-Public Use
  Company Number: None

PATIENT
  Age: 28 Year
  Sex: Male
  Weight: 61.234 kg

DRUGS (1)
  1. LEVOFLOXACIN [Suspect]
     Indication: SINUSITIS
     Dosage: 1 TABLET
     Route: 048
     Dates: start: 20111011, end: 20111024

REACTIONS (21)
  - PAIN [None]
  - PARAESTHESIA [None]
  - HYPERACUSIS [None]
  - TOXICITY TO VARIOUS AGENTS [None]
  - ACTIVITIES OF DAILY LIVING IMPAIRED [None]
  - MUSCLE SPASMS [None]
  - QUALITY OF LIFE DECREASED [None]
  - MALAISE [None]
  - FAMILY STRESS [None]
  - BALANCE DISORDER [None]
  - THINKING ABNORMAL [None]
  - SPEECH DISORDER [None]
  - INSOMNIA [None]
  - VERTIGO [None]
  - ASTHENIA [None]
  - ABASIA [None]
  - HYPOAESTHESIA [None]
  - EATING DISORDER [None]
  - FEELING ABNORMAL [None]
  - IMPAIRED WORK ABILITY [None]
  - DIZZINESS [None]
